FAERS Safety Report 10419008 (Version 1)
Quarter: 2014Q2

REPORT INFORMATION
  Report Type: Spontaneous
  Country: US (occurrence: None)
  Receive Date: 20140617
  Receipt Date: 20140617
  Transmission Date: 20141212
  Serious: Yes (Hospitalization)
  Sender: FDA-Public Use
  Company Number: USW201311-000151

PATIENT
  Age: 67 Year
  Sex: Female

DRUGS (4)
  1. APOKYN [Suspect]
     Indication: PARKINSON^S DISEASE
     Dosage: 0.4 ML, 4-5 TIMES A DAY
     Dates: start: 20131101, end: 20131127
  2. CARBIDOPA/LEVODOPA [Concomitant]
  3. PRAMIPEXOLE [Concomitant]
  4. WARFARIN [Concomitant]

REACTIONS (2)
  - Anaphylactic reaction [None]
  - Dyspnoea [None]
